FAERS Safety Report 4678222-4 (Version None)
Quarter: 2005Q2

REPORT INFORMATION
  Report Type: 
  Country: None (occurrence: None)
  Receive Date: 20050601
  Receipt Date: 20050520
  Transmission Date: 20051028
  Serious: Yes (Hospitalization)
  Sender: FDA-Public Use
  Company Number: JP-BRISTOL-MYERS SQUIBB COMPANY-12985107

PATIENT
  Age: 99 Year
  Sex: Female

DRUGS (7)
  1. GATIFLO TABS [Suspect]
     Indication: CEREBRAL INFARCTION
     Dosage: VIA GASTROSTOMY TUBE
     Route: 050
     Dates: start: 20050421, end: 20050426
  2. BAYASPIRIN [Concomitant]
     Dosage: VIA GASTROSTOMY TUBE
     Route: 050
     Dates: end: 20050427
  3. FUROSEMIDE [Concomitant]
     Dosage: VIA GASTROSTOMY TUBE
     Route: 050
     Dates: end: 20050427
  4. PERSANTIN [Concomitant]
     Dosage: VIA GASTROSTOMY TUBE
     Route: 050
     Dates: end: 20050427
  5. GASMOTIN [Concomitant]
     Dosage: VIA GASTROSTOMY TUBE
     Route: 050
     Dates: end: 20050427
  6. CALCIUM LACTATE [Concomitant]
     Dosage: VIA GASTROSTOMY TUBE
     Route: 050
     Dates: end: 20050427
  7. MAGNESIUM OXIDE [Concomitant]
     Dosage: VIA GASTROSTOMY TUBE
     Route: 050
     Dates: end: 20050427

REACTIONS (2)
  - DIABETIC HYPEROSMOLAR COMA [None]
  - HYPERGLYCAEMIA [None]
